FAERS Safety Report 18351451 (Version 4)
Quarter: 2025Q3

REPORT INFORMATION
  Report Type: Report from Study
  Country: EU (occurrence: EU)
  Receive Date: 20201007
  Receipt Date: 20250720
  Transmission Date: 20251020
  Serious: Yes (Death, Life-Threatening, Other)
  Sender: AUROBINDO
  Company Number: EU-CHEPLA-C20202827_04

PATIENT

DRUGS (6)
  1. VALGANCICLOVIR HYDROCHLORIDE [Suspect]
     Active Substance: VALGANCICLOVIR HYDROCHLORIDE
     Indication: Cytomegalovirus infection
     Dosage: 900 MILLIGRAM, TWO TIMES A DAY
     Route: 048
  2. VALGANCICLOVIR HYDROCHLORIDE [Suspect]
     Active Substance: VALGANCICLOVIR HYDROCHLORIDE
     Route: 048
  3. FOSCARNET [Suspect]
     Active Substance: FOSCARNET
     Indication: Cytomegalovirus infection
     Dosage: 90 MILLIGRAM/KILOGRAM, ONCE A DAY
     Route: 042
  4. FOSCARNET [Suspect]
     Active Substance: FOSCARNET
     Dosage: 60 MILLIGRAM/KILOGRAM, TWO TIMES A DAY
     Route: 042
  5. GANCICLOVIR [Suspect]
     Active Substance: GANCICLOVIR
     Indication: Cytomegalovirus infection
     Dosage: 5 MILLIGRAM/KILOGRAM, TWO TIMES A DAY
     Route: 042
  6. GANCICLOVIR [Suspect]
     Active Substance: GANCICLOVIR
     Dosage: 6 MILLIGRAM/KILOGRAM, ONCE A DAY
     Route: 042

REACTIONS (9)
  - Cytomegalovirus infection reactivation [Fatal]
  - Graft versus host disease [Unknown]
  - Neutropenia [Fatal]
  - Viral mutation identified [Fatal]
  - Rash [Fatal]
  - Acute graft versus host disease [Fatal]
  - Colitis [Fatal]
  - Cytomegalovirus enterocolitis [Unknown]
  - Drug resistance [Unknown]
